FAERS Safety Report 11209837 (Version 1)
Quarter: 2015Q2

REPORT INFORMATION
  Report Type: Spontaneous
  Country: US (occurrence: US)
  Receive Date: 20150622
  Receipt Date: 20150622
  Transmission Date: 20150821
  Serious: Yes (Other)
  Sender: FDA-Public Use
  Company Number: US-ASTELLAS-2014US006963

PATIENT
  Sex: Male

DRUGS (1)
  1. VESICARE [Suspect]
     Active Substance: SOLIFENACIN SUCCINATE
     Indication: POLLAKIURIA
     Route: 065
     Dates: start: 201405, end: 20140616

REACTIONS (7)
  - Dry throat [Recovered/Resolved]
  - Dysuria [Recovered/Resolved]
  - Dyspepsia [Recovered/Resolved]
  - Urinary retention [Recovered/Resolved]
  - Dysphagia [Recovered/Resolved]
  - Throat irritation [Recovered/Resolved]
  - Dry mouth [Recovered/Resolved]
